FAERS Safety Report 11911044 (Version 1)
Quarter: 2016Q1

REPORT INFORMATION
  Report Type: Spontaneous
  Country: US (occurrence: None)
  Receive Date: 20160111
  Receipt Date: 20160111
  Transmission Date: 20160526
  Serious: No
  Sender: FDA-Public Use
  Company Number: None

PATIENT
  Age: 50 Year
  Sex: Female
  Weight: 47.63 kg

DRUGS (4)
  1. WELLBURTIN SR [Concomitant]
  2. SYMBICORT [Suspect]
     Active Substance: BUDESONIDE\FORMOTEROL FUMARATE DIHYDRATE
     Indication: ASTHMA
     Dosage: 2 PUFFS
     Route: 055
     Dates: start: 20160107, end: 20160109
  3. DYMISTA [Concomitant]
     Active Substance: AZELASTINE HYDROCHLORIDE\FLUTICASONE PROPIONATE
  4. HAIR GROWTH SUPPLEMENT WITH BIOTIN [Concomitant]

REACTIONS (1)
  - Chest pain [None]

NARRATIVE: CASE EVENT DATE: 20160109
